FAERS Safety Report 16544784 (Version 2)
Quarter: 2019Q3

REPORT INFORMATION
  Report Type: Report from Study
  Country: US (occurrence: US)
  Receive Date: 20190709
  Receipt Date: 20190730
  Transmission Date: 20191004
  Serious: Yes (Other)
  Sender: FDA-Public Use
  Company Number: US-JNJFOC-20190631263

PATIENT
  Age: 87 Year
  Sex: Male

DRUGS (2)
  1. IMBRUVICA [Suspect]
     Active Substance: IBRUTINIB
     Indication: B-CELL LYMPHOMA
     Dosage: 140 MG, QD
     Route: 048
     Dates: start: 20190613, end: 20190711
  2. IMBRUVICA [Suspect]
     Active Substance: IBRUTINIB
     Dosage: 280 MG, QD
     Route: 048
     Dates: start: 20190712

REACTIONS (24)
  - Abnormal dreams [Unknown]
  - Balance disorder [Unknown]
  - Stomatitis [Unknown]
  - Asthenia [Unknown]
  - Productive cough [Unknown]
  - Abdominal pain upper [Recovered/Resolved]
  - Off label use [Unknown]
  - Eye disorder [Unknown]
  - Dyschezia [Unknown]
  - Incorrect dose administered [Unknown]
  - Erythema [Recovered/Resolved]
  - Hordeolum [Unknown]
  - Migraine with aura [Recovered/Resolved]
  - Ocular hyperaemia [Unknown]
  - Dehydration [Recovered/Resolved]
  - Oedema [Unknown]
  - Macular degeneration [Unknown]
  - Temporal arteritis [Unknown]
  - Photopsia [Unknown]
  - Night sweats [Recovering/Resolving]
  - Cholecystectomy [Unknown]
  - Scratch [Recovered/Resolved]
  - Frequent bowel movements [Unknown]
  - Constipation [Unknown]

NARRATIVE: CASE EVENT DATE: 201906
